FAERS Safety Report 22362743 (Version 5)
Quarter: 2024Q4

REPORT INFORMATION
  Report Type: Report from Study
  Country: CA (occurrence: CA)
  Receive Date: 20230524
  Receipt Date: 20241001
  Transmission Date: 20250114
  Serious: Yes (Other)
  Sender: JOHNSON AND JOHNSON
  Company Number: CA-JNJFOC-20230304021

PATIENT
  Age: 66 Year
  Sex: Female

DRUGS (4)
  1. SIMPONI [Suspect]
     Active Substance: GOLIMUMAB
     Indication: Rheumatoid arthritis
     Route: 058
     Dates: start: 20180524
  2. HYDROXYCHLOROQUINE [Suspect]
     Active Substance: HYDROXYCHLOROQUINE
     Route: 065
  3. ASPIRIN [Concomitant]
     Active Substance: ASPIRIN
  4. NAPROXEN [Concomitant]
     Active Substance: NAPROXEN

REACTIONS (11)
  - Nephrolithiasis [Unknown]
  - Diabetes mellitus [Recovering/Resolving]
  - Eye disorder [Unknown]
  - Dyspnoea [Unknown]
  - COVID-19 [Unknown]
  - Heart rate increased [Recovering/Resolving]
  - Sciatica [Not Recovered/Not Resolved]
  - Headache [Unknown]
  - Blood pressure increased [Recovering/Resolving]
  - Dizziness [Unknown]
  - Nausea [Unknown]

NARRATIVE: CASE EVENT DATE: 20220101
